FAERS Safety Report 4365023-X (Version None)
Quarter: 2004Q2

REPORT INFORMATION
  Report Type: 
  Country: None (occurrence: None)
  Receive Date: 20040521
  Receipt Date: 20040510
  Transmission Date: 20050107
  Serious: Yes (Hospitalization, Other)
  Sender: FDA-Public Use
  Company Number: 2004014131

PATIENT
  Age: 46 Year
  Sex: Female
  Weight: 165 kg

DRUGS (4)
  1. NEURONTIN [Suspect]
     Indication: NEUROPATHIC PAIN
     Dosage: 3600 MG (600 MG, 3 IN 1 D), ORAL
     Route: 048
     Dates: start: 20040217, end: 20040217
  2. AMITRIPTYLINE HCL [Concomitant]
  3. MEDROXYPROGESTERONE ACETATE [Concomitant]
  4. FUSIDIC CID (FUSIDIC ACID) [Concomitant]

REACTIONS (8)
  - CYANOSIS [None]
  - DIZZINESS [None]
  - HEART RATE DECREASED [None]
  - LOSS OF CONSCIOUSNESS [None]
  - MYOKYMIA [None]
  - SKIN DISCOLOURATION [None]
  - SPEECH DISORDER [None]
  - SYNCOPE [None]
